FAERS Safety Report 6957010-X (Version None)
Quarter: 2010Q3

REPORT INFORMATION
  Report Type: 
  Country: None (occurrence: None)
  Receive Date: 20100827
  Receipt Date: 20100827
  Transmission Date: 20110219
  Serious: Yes (Hospitalization)
  Sender: FDA-Public Use
  Company Number: None

PATIENT
  Age: 74 Year
  Weight: 59.4212 kg

DRUGS (4)
  1. (NOT RELATED) BENDAMUSTINE [Suspect]
     Indication: SMALL CELL LUNG CANCER STAGE UNSPECIFIED
     Dosage: 120 MG/M2
     Dates: start: 20100805, end: 20100806
  2. DIGOXIN [Concomitant]
  3. WARFARIN SODIUM [Concomitant]
  4. TRIAMTERENE [Concomitant]

REACTIONS (2)
  - LYMPHADENOPATHY [None]
  - MALIGNANT NEOPLASM PROGRESSION [None]
